FAERS Safety Report 4398086-6 (Version None)
Quarter: 2004Q3

REPORT INFORMATION
  Report Type: 
  Country: None (occurrence: None)
  Receive Date: 20040713
  Receipt Date: 20040630
  Transmission Date: 20050211
  Serious: Yes (Other)
  Sender: FDA-Public Use
  Company Number: 2004022018

PATIENT
  Age: 76 Year
  Sex: Male
  Weight: 80 kg

DRUGS (4)
  1. NORVASC [Suspect]
     Indication: HYPERTENSION
     Dosage: 5 MG, ORAL
     Route: 048
     Dates: end: 20040301
  2. DOXAZOSIN MESYLATE [Suspect]
     Indication: HYPERTENSION
     Dosage: 2 MG, ORAL
     Route: 048
     Dates: start: 20030701
  3. CANDESARTAN CILEXETIL (CANDESARTAN CILEXETIL) [Suspect]
     Indication: HYPERTENSION
     Dosage: ORAL
     Route: 048
     Dates: start: 20040401
  4. VOGLIBOSE (VOGLIBOSE) [Suspect]
     Indication: ILL-DEFINED DISORDER
     Dosage: 0.3 MG, ORAL
     Route: 048

REACTIONS (2)
  - CEREBRAL INFARCTION [None]
  - NERVOUSNESS [None]
